FAERS Safety Report 5698826-X (Version None)
Quarter: 2008Q2

REPORT INFORMATION
  Report Type: 
  Country: None (occurrence: None)
  Receive Date: 20080408
  Receipt Date: 20070313
  Transmission Date: 20081010
  Serious: No
  Sender: FDA-Public Use
  Company Number: PR-BAYER-PR-2007-008898

PATIENT
  Age: 44 Year
  Sex: Female

DRUGS (2)
  1. ULTRAVIST 300 [Suspect]
     Indication: UROGRAM
     Dates: start: 20070308, end: 20070308
  2. MEDROL [Concomitant]
     Indication: PREMEDICATION

REACTIONS (2)
  - DRY SKIN [None]
  - THROAT IRRITATION [None]
